FAERS Safety Report 22321256 (Version 13)
Quarter: 2025Q3

REPORT INFORMATION
  Report Type: Spontaneous
  Country: US (occurrence: US)
  Receive Date: 20230515
  Receipt Date: 20250912
  Transmission Date: 20251020
  Serious: Yes (Other)
  Sender: PFIZER
  Company Number: US-PFIZER INC-PV202300085096

PATIENT
  Age: 82 Year
  Sex: Female

DRUGS (2)
  1. PREMARIN [Suspect]
     Active Substance: ESTROGENS, CONJUGATED
     Route: 048
  2. RESTASIS [Concomitant]
     Active Substance: CYCLOSPORINE

REACTIONS (16)
  - Skin cancer [Not Recovered/Not Resolved]
  - Nasal polyps [Not Recovered/Not Resolved]
  - Therapeutic response unexpected [Unknown]
  - Influenza [Unknown]
  - Respiratory tract infection [Unknown]
  - Weight decreased [Unknown]
  - Body height decreased [Unknown]
  - Blood pressure decreased [Unknown]
  - Sneezing [Unknown]
  - Headache [Not Recovered/Not Resolved]
  - Bone pain [Unknown]
  - Hypertension [Unknown]
  - Night sweats [Not Recovered/Not Resolved]
  - Menopausal symptoms [Not Recovered/Not Resolved]
  - Sleep disorder [Unknown]
  - Nervousness [Unknown]
